FAERS Safety Report 11460256 (Version 1)
Quarter: 2015Q3

REPORT INFORMATION
  Report Type: Spontaneous
  Country: GB (occurrence: GB)
  Receive Date: 20150904
  Receipt Date: 20150904
  Transmission Date: 20151125
  Serious: Yes (Other)
  Sender: FDA-Public Use
  Company Number: GB-GLAXOSMITHKLINE-GB2015124385

PATIENT
  Age: 41 Year
  Sex: Female
  Weight: 60.77 kg

DRUGS (1)
  1. BECONASE AQ [Suspect]
     Active Substance: BECLOMETHASONE DIPROPIONATE MONOHYDRATE
     Indication: NASAL CONGESTION
     Route: 045

REACTIONS (1)
  - Bronchospasm [Recovered/Resolved]
